FAERS Safety Report 7280048-2 (Version None)
Quarter: 2011Q1

REPORT INFORMATION
  Report Type: 
  Country: None (occurrence: None)
  Receive Date: 20110208
  Receipt Date: 20110203
  Transmission Date: 20110831
  Serious: Yes (Death)
  Sender: FDA-Public Use
  Company Number: NL-SANOFI-AVENTIS-2011SA007378

PATIENT
  Age: 77 Year
  Sex: Male
  Weight: 61 kg

DRUGS (9)
  1. ELOXATIN [Suspect]
     Dates: start: 20101101, end: 20101101
  2. GRANISETRON HCL [Concomitant]
     Route: 048
     Dates: start: 20101126, end: 20101211
  3. METOPROLOL TARTRATE [Concomitant]
     Route: 048
     Dates: start: 20100901, end: 20101203
  4. LACTULOSE [Concomitant]
     Route: 048
     Dates: start: 20101201, end: 20101208
  5. NIFEDIPINE [Concomitant]
     Route: 048
     Dates: end: 20101203
  6. XELODA [Suspect]
     Route: 048
     Dates: start: 20101125
  7. HYDROCHLOROTHIAZIDE [Concomitant]
     Route: 048
     Dates: end: 20101203
  8. METOCLOPRAMIDE [Concomitant]
     Route: 048
     Dates: start: 20101126, end: 20101206
  9. LOPERAMIDE [Concomitant]
     Route: 048
     Dates: start: 20101126, end: 20101203

REACTIONS (2)
  - DEATH [None]
  - SEPSIS [None]
